FAERS Safety Report 7045136-4 (Version None)
Quarter: 2010Q4

REPORT INFORMATION
  Report Type: 
  Country: None (occurrence: None)
  Receive Date: 20101014
  Receipt Date: 20101004
  Transmission Date: 20110411
  Serious: Yes (Hospitalization)
  Sender: FDA-Public Use
  Company Number: GB-ELI_LILLY_AND_COMPANY-GB201008003641

PATIENT
  Sex: Male
  Weight: 57 kg

DRUGS (5)
  1. ALIMTA [Suspect]
     Indication: PALLIATIVE CARE
     Dosage: 500 MG, UNKNOWN
     Route: 042
     Dates: start: 20100715, end: 20100805
  2. OMEPRAZOLE [Concomitant]
     Dosage: 20 MG, UNKNOWN
     Route: 048
  3. ACETAMINOPHEN AND CODEINE PHOSPHATE [Concomitant]
     Indication: PAIN
     Dosage: 30/500 UNK, UNKNOWN
     Route: 048
  4. FOLIC ACID [Concomitant]
     Dosage: 400 UG, UNKNOWN
     Route: 065
     Dates: end: 20100728
  5. FOLIC ACID [Concomitant]
     Dosage: 5 MG, UNK
     Dates: start: 20100806

REACTIONS (5)
  - DEHYDRATION [None]
  - MOBILITY DECREASED [None]
  - MUCOSAL INFLAMMATION [None]
  - PANCYTOPENIA [None]
  - PNEUMONIA STREPTOCOCCAL [None]
